FAERS Safety Report 7101378-0 (Version None)
Quarter: 2010Q4

REPORT INFORMATION
  Report Type: 
  Country: None (occurrence: None)
  Receive Date: 20101115
  Receipt Date: 20101109
  Transmission Date: 20110411
  Serious: Yes (Hospitalization, Disabling)
  Sender: FDA-Public Use
  Company Number: JP-BRISTOL-MYERS SQUIBB COMPANY-15201312

PATIENT
  Age: 65 Year
  Sex: Male

DRUGS (4)
  1. AVAPRO [Suspect]
     Indication: HYPERTENSION
     Route: 048
     Dates: start: 20100215, end: 20100629
  2. AMLODIPINE [Suspect]
     Indication: HYPERTENSION
     Dosage: 01FEB10-15APR10 5 MG, DOSE INCREASED TO 10MG/D ON 16APR10-29JUN10,75DAYS.
     Route: 048
     Dates: start: 20100201, end: 20100629
  3. LIVALO [Suspect]
     Indication: DYSLIPIDAEMIA
     Route: 048
     Dates: start: 20100305, end: 20100629
  4. ARTIST [Suspect]
     Indication: HYPERTENSION
     Route: 048
     Dates: start: 20100518, end: 20100629

REACTIONS (2)
  - ARRHYTHMIA [None]
  - CEREBRAL INFARCTION [None]
